FAERS Safety Report 6059520-9 (Version None)
Quarter: 2009Q1

REPORT INFORMATION
  Report Type: 
  Country: None (occurrence: None)
  Receive Date: 20090130
  Receipt Date: 20090119
  Transmission Date: 20090719
  Serious: Yes (Hospitalization, Other)
  Sender: FDA-Public Use
  Company Number: US-ELI_LILLY_AND_COMPANY-US200901003046

PATIENT
  Sex: Male

DRUGS (6)
  1. CYMBALTA [Suspect]
     Indication: DEPRESSION
     Dosage: 30 MG, DAILY (1/D)
     Route: 048
     Dates: end: 20081209
  2. CYMBALTA [Suspect]
     Dosage: 900 MG, OTHER
     Route: 048
     Dates: start: 20081202, end: 20081202
  3. STRATTERA [Suspect]
     Indication: ATTENTION DEFICIT/HYPERACTIVITY DISORDER
     Dosage: 1 D/F, UNK
     Route: 048
     Dates: end: 20081209
  4. STRATTERA [Suspect]
     Dosage: 1 D/F, OTHER
     Route: 048
     Dates: start: 20081202, end: 20081202
  5. ALLERGY MEDICATION [Concomitant]
     Dosage: 12 D/F, OTHER
     Route: 048
     Dates: start: 20081202, end: 20081202
  6. ANTIACID [Concomitant]
     Dosage: UNK, OTHER
     Route: 048
     Dates: start: 20081202, end: 20081202

REACTIONS (8)
  - HAEMATURIA [None]
  - HYPERTONIC BLADDER [None]
  - INTENTIONAL OVERDOSE [None]
  - MICTURITION URGENCY [None]
  - OLIGURIA [None]
  - PANCREATIC DISORDER [None]
  - SUICIDAL IDEATION [None]
  - SUICIDE ATTEMPT [None]
